FAERS Safety Report 6132231-7 (Version None)
Quarter: 2009Q1

REPORT INFORMATION
  Report Type: 
  Country: None (occurrence: None)
  Receive Date: 20090325
  Receipt Date: 20090317
  Transmission Date: 20090719
  Serious: Yes (Hospitalization)
  Sender: FDA-Public Use
  Company Number: US-PFIZER INC-2009179594

PATIENT
  Sex: Female
  Weight: 79.819 kg

DRUGS (13)
  1. NAPROXEN [Suspect]
     Indication: OSTEOARTHRITIS
     Dosage: UNK
     Route: 048
     Dates: start: 20080424, end: 20090122
  2. BLINDED *PLACEBO [Suspect]
     Indication: OSTEOARTHRITIS
     Dosage: UNK
     Route: 048
     Dates: start: 20080424, end: 20090122
  3. BLINDED CELECOXIB [Suspect]
     Indication: OSTEOARTHRITIS
     Dosage: UNK
     Route: 048
     Dates: start: 20080424, end: 20090122
  4. IBUPROFEN TABLETS [Suspect]
     Indication: OSTEOARTHRITIS
     Dosage: UNK
     Route: 048
     Dates: start: 20080424, end: 20090122
  5. NAPROXEN [Suspect]
     Dosage: UNK
     Route: 048
     Dates: start: 20080424, end: 20090122
  6. NAPROXEN [Suspect]
     Indication: RHEUMATOID ARTHRITIS
  7. BLINDED *PLACEBO [Suspect]
     Indication: RHEUMATOID ARTHRITIS
  8. BLINDED CELECOXIB [Suspect]
     Indication: RHEUMATOID ARTHRITIS
  9. IBUPROFEN TABLETS [Suspect]
     Indication: RHEUMATOID ARTHRITIS
  10. NAPROXEN [Suspect]
  11. NEXIUM [Concomitant]
     Dosage: 40 MG, 1X/DAY
     Route: 048
     Dates: start: 20081216, end: 20090122
  12. LEVAQUIN [Concomitant]
     Dosage: UNK
     Route: 042
     Dates: end: 20090217
  13. VANCOMYCIN [Concomitant]
     Dosage: UNK
     Route: 042
     Dates: end: 20090217

REACTIONS (1)
  - STAPHYLOCOCCAL INFECTION [None]
